FAERS Safety Report 12957067 (Version 2)
Quarter: 2016Q4

REPORT INFORMATION
  Report Type: Spontaneous
  Country: US (occurrence: US)
  Receive Date: 20161118
  Receipt Date: 20161212
  Transmission Date: 20170207
  Serious: Yes (Hospitalization, Other)
  Sender: FDA-Public Use
  Company Number: US-009507513-1611USA007550

PATIENT
  Sex: Male

DRUGS (9)
  1. CUBICIN [Suspect]
     Active Substance: DAPTOMYCIN
     Indication: SEPTIC ARTHRITIS STAPHYLOCOCCAL
     Dosage: 400 MG, QD
     Route: 042
     Dates: start: 20161029, end: 20161108
  2. ASPIRIN. [Concomitant]
     Active Substance: ASPIRIN
     Route: 048
  3. TRAZODONE HYDROCHLORIDE. [Concomitant]
     Active Substance: TRAZODONE HYDROCHLORIDE
     Route: 048
  4. ESCITALOPRAM [Concomitant]
     Active Substance: ESCITALOPRAM OXALATE
  5. METOPROLOL. [Concomitant]
     Active Substance: METOPROLOL
  6. CEFTAZIDIME. [Concomitant]
     Active Substance: CEFTAZIDIME
     Dosage: 2 G, TID
  7. IRON (UNSPECIFIED) [Concomitant]
     Active Substance: IRON
  8. VITAMINS (UNSPECIFIED) [Concomitant]
     Active Substance: VITAMINS
  9. VANCOMYCIN [Concomitant]
     Active Substance: VANCOMYCIN

REACTIONS (2)
  - Pneumonia [Not Recovered/Not Resolved]
  - Myositis [Not Recovered/Not Resolved]

NARRATIVE: CASE EVENT DATE: 2016
